FAERS Safety Report 9096069 (Version 5)
Quarter: 2014Q1

REPORT INFORMATION
  Report Type: Report from Study
  Country: US (occurrence: US)
  Receive Date: 20130207
  Receipt Date: 20140326
  Transmission Date: 20141002
  Serious: Yes (Hospitalization, Other)
  Sender: FDA-Public Use
  Company Number: US-ACTELION-A-NJ2013-77448

PATIENT
  Age: 62 Year
  Sex: Female

DRUGS (19)
  1. TRACLEER [Suspect]
     Indication: PULMONARY ARTERIAL HYPERTENSION
     Dosage: 62.5 MG, BID
     Route: 048
     Dates: start: 20121210, end: 20121231
  2. TRACLEER [Suspect]
     Dosage: 125 UNK, UNK
     Route: 048
     Dates: start: 20130227
  3. SILDENAFIL [Concomitant]
     Dosage: 20 MG, TID
  4. TYVASO [Concomitant]
     Dosage: 6  Q6HRS
  5. ASPIRIN [Concomitant]
     Dosage: 81 MG, QD
  6. CALCIUM PLUS VITAMIN D3 [Concomitant]
     Dosage: 60 MG, QD
  7. COUMADIN [Concomitant]
     Dosage: 4.5 MG, UNK
  8. CRESTOR [Concomitant]
     Dosage: 10 MG, QD
  9. FISH OIL [Concomitant]
     Dosage: UNK, QD
  10. FOLIC ACID [Concomitant]
     Dosage: 1 MG, QD
  11. KEPPRA [Concomitant]
     Dosage: UNK MG, UNK
  12. LASIX [Concomitant]
     Dosage: 80 MG, QD
  13. MAGNESIUM OXIDE [Concomitant]
     Dosage: 500 MG, BID
  14. PLETAL [Concomitant]
     Dosage: 100 MG, BID
  15. PREDNISONE [Concomitant]
     Dosage: 6 MG, QD
  16. PREVACID [Concomitant]
     Dosage: 30 MG, QD
  17. TEGRETOL [Concomitant]
     Dosage: 400 MG, BID
  18. TRICOR [Concomitant]
     Dosage: 145 UNK, QD
  19. VITAMIN B12 [Concomitant]
     Dosage: UNK, QD

REACTIONS (13)
  - Electrolyte imbalance [Recovering/Resolving]
  - Gastrointestinal haemorrhage [Recovering/Resolving]
  - Autoimmune haemolytic anaemia [Recovering/Resolving]
  - Haemoglobin decreased [Recovering/Resolving]
  - Condition aggravated [Recovering/Resolving]
  - Iron deficiency anaemia [Recovering/Resolving]
  - Packed red blood cell transfusion [Recovering/Resolving]
  - Platelet count decreased [Recovering/Resolving]
  - Pulmonary hypertension [Unknown]
  - Pericardial effusion [Unknown]
  - Asthenia [Unknown]
  - Dyspnoea [Unknown]
  - Hypercoagulation [Unknown]
